APPROVED DRUG PRODUCT: GELNIQUE 3%
Active Ingredient: OXYBUTYNIN
Strength: 3%
Dosage Form/Route: GEL, METERED;TRANSDERMAL
Application: N202513 | Product #001
Applicant: ALLERGAN SALES LLC
Approved: Dec 7, 2011 | RLD: Yes | RS: No | Type: DISCN